FAERS Safety Report 23101107 (Version 1)
Quarter: 2023Q4

REPORT INFORMATION
  Report Type: Spontaneous
  Country: US (occurrence: None)
  Receive Date: 20231022
  Receipt Date: 20231022
  Transmission Date: 20240110
  Serious: Yes (Hospitalization)
  Sender: FDA-Public Use
  Company Number: None

PATIENT
  Age: 71 Year
  Sex: Male
  Weight: 75 kg

DRUGS (1)
  1. CEFTAZIDIME [Suspect]
     Active Substance: CEFTAZIDIME
     Dosage: FREQUENCY : TWICE A DAY;?
     Route: 042
     Dates: start: 20230217, end: 20230223

REACTIONS (2)
  - Urinary incontinence [None]
  - Tonic clonic movements [None]

NARRATIVE: CASE EVENT DATE: 20230223
